FAERS Safety Report 24124096 (Version 3)
Quarter: 2024Q3

REPORT INFORMATION
  Report Type: Report from Study
  Country: FR (occurrence: FR)
  Receive Date: 20240723
  Receipt Date: 20240919
  Transmission Date: 20241017
  Serious: No
  Sender: SANDOZ
  Company Number: FR-SANDOZ-SDZ2024FR065687

PATIENT
  Age: 5 Year
  Sex: Female

DRUGS (2)
  1. OMNITROPE [Suspect]
     Active Substance: SOMATROPIN
     Indication: Product used for unknown indication
     Dosage: 0.45 MG/D 7 DAYS A WEEK
     Route: 058
     Dates: start: 20240706
  2. OMNITROPE [Suspect]
     Active Substance: SOMATROPIN
     Dosage: 0.45 MG/D 7D/7 MOVED TO 0.5 MG/D
     Route: 058
     Dates: start: 20240717

REACTIONS (9)
  - Fear of injection [Recovering/Resolving]
  - Injection site bruising [Not Recovered/Not Resolved]
  - Injection site pain [Recovering/Resolving]
  - Injection site haematoma [Recovering/Resolving]
  - Incorrect dose administered [Unknown]
  - Drug dose omission by device [Unknown]
  - Wrong technique in device usage process [Unknown]
  - Wrong technique in product usage process [Unknown]
  - Product dose omission issue [Unknown]

NARRATIVE: CASE EVENT DATE: 20240715
